FAERS Safety Report 24192738 (Version 1)
Quarter: 2024Q3

REPORT INFORMATION
  Report Type: Report from Study
  Country: US (occurrence: None)
  Receive Date: 20240809
  Receipt Date: 20240809
  Transmission Date: 20241017
  Serious: Yes (Hospitalization)
  Sender: ASTRAZENECA
  Company Number: 2021A882531

PATIENT
  Age: 76 Year
  Sex: Female

DRUGS (1)
  1. NEXIUM [Suspect]
     Active Substance: ESOMEPRAZOLE MAGNESIUM
     Indication: Gastrooesophageal reflux disease
     Route: 048

REACTIONS (10)
  - Lung neoplasm malignant [Unknown]
  - Fall [Unknown]
  - Oesophageal disorder [Unknown]
  - Hiatus hernia [Unknown]
  - Shoulder fracture [Recovering/Resolving]
  - Gait disturbance [Recovering/Resolving]
  - Oesophageal irritation [Unknown]
  - Epigastric discomfort [Unknown]
  - Dysphagia [Unknown]
  - Off label use [Not Recovered/Not Resolved]

NARRATIVE: CASE EVENT DATE: 20170101
